FAERS Safety Report 6788178-6 (Version None)
Quarter: 2010Q2

REPORT INFORMATION
  Report Type: 
  Country: None (occurrence: None)
  Receive Date: 20100623
  Receipt Date: 20080322
  Transmission Date: 20101027
  Serious: No
  Sender: FDA-Public Use
  Company Number: US-PFIZER INC-2008007228

PATIENT
  Sex: Female
  Weight: 63.5 kg

DRUGS (2)
  1. XALATAN [Suspect]
     Indication: GLAUCOMA
     Route: 031
     Dates: start: 20060101, end: 20071001
  2. DIAMOX SRC [Concomitant]
     Indication: GLAUCOMA

REACTIONS (5)
  - EYE PRURITUS [None]
  - EYE SWELLING [None]
  - INSOMNIA [None]
  - INTRAOCULAR PRESSURE INCREASED [None]
  - OCULAR HYPERAEMIA [None]
